FAERS Safety Report 6790275-6 (Version None)
Quarter: 2010Q2

REPORT INFORMATION
  Report Type: 
  Country: None (occurrence: None)
  Receive Date: 20100624
  Receipt Date: 20100615
  Transmission Date: 20101027
  Serious: Yes (Other)
  Sender: FDA-Public Use
  Company Number: HU-ALLERGAN-1008084US

PATIENT
  Age: 49 Year
  Sex: Female

DRUGS (2)
  1. GATIFLOXACIN SESQUIHYDRATE UNK [Suspect]
     Indication: EYE PAIN
     Route: 047
  2. NATAMYCIN [Suspect]
     Indication: EYE PAIN
     Route: 047

REACTIONS (3)
  - CATARACT [None]
  - DRUG INEFFECTIVE [None]
  - INTRAOCULAR PRESSURE INCREASED [None]
